FAERS Safety Report 20871457 (Version 1)
Quarter: 2022Q2

REPORT INFORMATION
  Report Type: Spontaneous
  Country: US (occurrence: None)
  Receive Date: 20220524
  Receipt Date: 20220524
  Transmission Date: 20220721
  Serious: No
  Sender: FDA-Public Use
  Company Number: None

PATIENT
  Sex: Female

DRUGS (1)
  1. IBRANCE [Suspect]
     Active Substance: PALBOCICLIB
     Indication: Breast cancer female
     Dosage: FREQUENCY : DAILY;?
     Route: 048
     Dates: start: 20220510

REACTIONS (8)
  - Pain [None]
  - Loss of personal independence in daily activities [None]
  - Fatigue [None]
  - Stomatitis [None]
  - Oral mucosal erythema [None]
  - Coating in mouth [None]
  - Mouth ulceration [None]
  - Eating disorder [None]
